FAERS Safety Report 9160032 (Version 1)
Quarter: 2013Q1

REPORT INFORMATION
  Report Type: Spontaneous
  Country: US (occurrence: None)
  Receive Date: 20130220
  Receipt Date: 20130220
  Transmission Date: 20140127
  Serious: Yes (Congenital Anomaly)
  Sender: FDA-Public Use
  Company Number: 2013-02349

PATIENT
  Sex: 0

DRUGS (3)
  1. OXALIPLETIN (ATLLC) (OXALIPLATIN) UNK, UNKUNK [Suspect]
     Indication: RHABDOMYOSARCOMA
     Dosage: DURATION 189 DAYS?
  2. VINORELBINE (ATLLC) (VINORELBINE) UNKNOWN, UNKUNK [Suspect]
     Indication: RHABDOMYOSARCOMA
     Dosage: DURATION 189 DAYS?
  3. IRINOTECAN HYDROCHLORIDE (ATLLC) (RINOTECAN HYDROCHLORIDE) UNK, UNKUNK [Suspect]
     Indication: RHABDOMYOSARCOMA
     Dosage: DURATION 35 DAYS UNK, UNKNOWN, TRANSPLACENTAL

REACTIONS (3)
  - Tracheo-oesophageal fistula [None]
  - Cleft lip and palate [None]
  - Foetal exposure during pregnancy [None]
